FAERS Safety Report 22344299 (Version 1)
Quarter: 2023Q2

REPORT INFORMATION
  Report Type: Spontaneous
  Country: CA (occurrence: CA)
  Receive Date: 20230519
  Receipt Date: 20230519
  Transmission Date: 20230721
  Serious: Yes (Other)
  Sender: FDA-Public Use
  Company Number: CA-002147023-NVSC2023CA112465

PATIENT
  Age: 81 Year
  Sex: Female

DRUGS (2)
  1. TRAVOPROST [Suspect]
     Active Substance: TRAVOPROST
     Indication: Glaucoma
     Dosage: 1 DRP, QD
     Route: 065
  2. TRAVOPROST [Suspect]
     Active Substance: TRAVOPROST
     Dosage: 2 DRP, QD
     Route: 065

REACTIONS (2)
  - Corneal irritation [Recovered/Resolved]
  - Product substitution issue [Recovered/Resolved]
